FAERS Safety Report 4591102-8 (Version None)
Quarter: 2005Q1

REPORT INFORMATION
  Report Type: 
  Country: None (occurrence: None)
  Receive Date: 20050218
  Receipt Date: 20050202
  Transmission Date: 20050727
  Serious: Yes (Hospitalization)
  Sender: FDA-Public Use
  Company Number: TNZFR200500009

PATIENT
  Age: 60 Year
  Sex: Female

DRUGS (5)
  1. INNOHEP [Suspect]
     Indication: THROMBOPHLEBITIS SUPERFICIAL
     Dosage: 12000 IU (12000 IU ONCE DAILY) SUBCUTANEOUS
     Route: 058
     Dates: start: 20041011, end: 20041021
  2. IBUPROFEN [Suspect]
     Indication: THROMBOPHLEBITIS SUPERFICIAL
     Dosage: ORAL
     Route: 048
     Dates: start: 20041017, end: 20041021
  3. LEVOTHYROXINE SODIUM [Concomitant]
  4. CELECTOL [Concomitant]
  5. ALDACTONE [Concomitant]

REACTIONS (14)
  - ARTHRALGIA [None]
  - BLOOD IMMUNOGLOBULIN A INCREASED [None]
  - BODY TEMPERATURE INCREASED [None]
  - COMPLEMENT FACTOR C3 INCREASED [None]
  - COMPLEMENT FACTOR INCREASED [None]
  - CYTOLYTIC HEPATITIS [None]
  - INFLAMMATION [None]
  - JOINT EFFUSION [None]
  - LEUKOCYTOCLASTIC VASCULITIS [None]
  - LIGAMENT DISORDER [None]
  - OEDEMA PERIPHERAL [None]
  - PURPURA [None]
  - SUBCUTANEOUS HAEMATOMA [None]
  - VASCULAR PURPURA [None]
